FAERS Safety Report 7437729-7 (Version None)
Quarter: 2011Q2

REPORT INFORMATION
  Report Type: 
  Country: None (occurrence: None)
  Receive Date: 20110426
  Receipt Date: 20110421
  Transmission Date: 20111010
  Serious: Yes (Other)
  Sender: FDA-Public Use
  Company Number: CN-ROCHE-772770

PATIENT
  Age: 56 Year
  Sex: Female
  Weight: 45 kg

DRUGS (3)
  1. CELLCEPT [Suspect]
     Indication: RENAL TRANSPLANT
     Route: 048
     Dates: start: 20050401
  2. SANDIMMUNE [Concomitant]
     Indication: RENAL TRANSPLANT
     Dosage: MANUFACTURER:NOVARTIS, SWITZERLAND.
     Route: 048
     Dates: start: 20050401
  3. PREDNISONE [Concomitant]
     Indication: RENAL TRANSPLANT
     Route: 048
     Dates: start: 20050401

REACTIONS (5)
  - VITREOUS DETACHMENT [None]
  - APHONIA [None]
  - HAEMORRHOID INFECTION [None]
  - OSTEOPOROSIS [None]
  - LUNG INFECTION [None]
